FAERS Safety Report 9105225 (Version 1)
Quarter: 2013Q1

REPORT INFORMATION
  Report Type: Spontaneous
  Country: JP (occurrence: JP)
  Receive Date: 20130220
  Receipt Date: 20130220
  Transmission Date: 20140127
  Serious: Yes (Other)
  Sender: FDA-Public Use
  Company Number: JP-BRISTOL-MYERS SQUIBB COMPANY-17325259

PATIENT
  Age: 7 Decade
  Sex: Female

DRUGS (1)
  1. VEPESID [Suspect]
     Indication: THYROID CANCER
     Dosage: NEXT ADMINISTRATION SCHEDULED FOR 26JAN2013
     Route: 042
     Dates: start: 20130125, end: 20130127

REACTIONS (1)
  - Vasculitis [Unknown]
